FAERS Safety Report 6490096-8 (Version None)
Quarter: 2009Q4

REPORT INFORMATION
  Report Type: 
  Country: None (occurrence: None)
  Receive Date: 20091124
  Receipt Date: 20090331
  Transmission Date: 20100525
  Serious: No
  Sender: FDA-Public Use
  Company Number: APP200900175

PATIENT

DRUGS (1)
  1. PENTAM [Suspect]
     Indication: DRUG USE FOR UNKNOWN INDICATION

REACTIONS (2)
  - NAUSEA [None]
  - VOMITING [None]
